FAERS Safety Report 16408398 (Version 1)
Quarter: 2019Q2

REPORT INFORMATION
  Report Type: Spontaneous
  Country: GB (occurrence: GB)
  Receive Date: 20190610
  Receipt Date: 20190610
  Transmission Date: 20190711
  Serious: Yes (Life-Threatening, Hospitalization)
  Sender: FDA-Public Use
  Company Number: GB-TEVA-2019-GB-1060006

PATIENT
  Age: 35 Year
  Sex: Female
  Weight: 58.9 kg

DRUGS (3)
  1. NITROFURANTOIN. [Suspect]
     Active Substance: NITROFURANTOIN
     Route: 048
     Dates: start: 20190201, end: 20190206
  2. NITROFURANTOIN. [Suspect]
     Active Substance: NITROFURANTOIN
     Indication: URINARY TRACT INFECTION
     Dosage: 200 MILLIGRAM DAILY;
     Route: 048
     Dates: start: 20181231, end: 20190103
  3. NITROFURANTOIN. [Suspect]
     Active Substance: NITROFURANTOIN
     Route: 048
     Dates: start: 20190320, end: 20190325

REACTIONS (9)
  - Drug-induced liver injury [Not Recovered/Not Resolved]
  - Fatigue [Unknown]
  - Abdominal distension [Unknown]
  - Faeces discoloured [Unknown]
  - Chromaturia [Unknown]
  - Jaundice [Unknown]
  - Liver injury [Not Recovered/Not Resolved]
  - Nausea [Unknown]
  - Dysgeusia [Unknown]

NARRATIVE: CASE EVENT DATE: 20190115
